FAERS Safety Report 7824538-X (Version None)
Quarter: 2011Q4

REPORT INFORMATION
  Report Type: 
  Country: None (occurrence: None)
  Receive Date: 20111019
  Receipt Date: 20111007
  Transmission Date: 20120403
  Serious: Yes (Hospitalization)
  Sender: FDA-Public Use
  Company Number: FR-SANOFI-AVENTIS-2011SA065638

PATIENT
  Age: 50 Year
  Sex: Male

DRUGS (9)
  1. ATORVASTATIN CALCIUM [Suspect]
     Route: 048
     Dates: end: 20110809
  2. ENALAPRIL MALEATE AND HYDROCHLOROTHIAZIDE [Suspect]
     Route: 048
     Dates: end: 20110809
  3. JANUVIA [Suspect]
     Route: 048
     Dates: end: 20110809
  4. RILMENIDINE [Suspect]
     Route: 048
     Dates: end: 20110809
  5. KERLONE [Suspect]
     Route: 048
     Dates: end: 20110809
  6. LERCANIDIPINE [Suspect]
     Route: 048
     Dates: end: 20110809
  7. REPAGLINIDE [Suspect]
     Route: 048
     Dates: end: 20110809
  8. ALLOPURINOL [Suspect]
     Route: 048
     Dates: end: 20110809
  9. OXYCONTIN [Suspect]
     Route: 048
     Dates: start: 20110713, end: 20110809

REACTIONS (4)
  - RENAL FAILURE [None]
  - PANCREATIC ENZYMES INCREASED [None]
  - INTESTINAL OBSTRUCTION [None]
  - DEHYDRATION [None]
